FAERS Safety Report 10052714 (Version 6)
Quarter: 2014Q3

REPORT INFORMATION
  Report Type: Spontaneous
  Country: US (occurrence: None)
  Receive Date: 20140331
  Receipt Date: 20140825
  Transmission Date: 20150326
  Serious: Yes (Hospitalization, Other)
  Sender: FDA-Public Use
  Company Number: UTC-046299

PATIENT
  Age: 55 Year
  Sex: Female
  Weight: 82.5 kg

DRUGS (7)
  1. SPIRONOLACTONE. [Concomitant]
     Active Substance: SPIRONOLACTONE
  2. LASIX [Concomitant]
     Active Substance: FUROSEMIDE
  3. LETAIRIS [Suspect]
     Active Substance: AMBRISENTAN
     Indication: PULMONARY HYPERTENSION
     Dates: start: 20140222
  4. PREDNISONE. [Concomitant]
     Active Substance: PREDNISONE
  5. LETAIRIS [Suspect]
     Active Substance: AMBRISENTAN
     Indication: CONNECTIVE TISSUE DISORDER
     Dates: start: 20140222
  6. TYVASO [Suspect]
     Active Substance: TREPROSTINIL
     Indication: PULMONARY ARTERIAL HYPERTENSION
     Dosage: 18-54 MCG (4 IN 1 D), INHALATION
     Route: 055
     Dates: start: 20140214, end: 20140222
  7. IMURAN [Concomitant]
     Active Substance: AZATHIOPRINE

REACTIONS (16)
  - Throat irritation [None]
  - Pyrexia [None]
  - Cardiomegaly [None]
  - Dyspnoea [None]
  - Lethargy [None]
  - Productive cough [None]
  - Headache [None]
  - Cough [None]
  - Chills [None]
  - Pneumonia [None]
  - Therapy cessation [None]
  - Dyspnoea exertional [None]
  - Pallor [None]
  - Palpitations [None]
  - Heart rate increased [None]
  - Pulmonary oedema [None]

NARRATIVE: CASE EVENT DATE: 20140222
